FAERS Safety Report 4813279-9 (Version None)
Quarter: 2005Q4

REPORT INFORMATION
  Report Type: 
  Country: None (occurrence: None)
  Receive Date: 20051028
  Receipt Date: 20050421
  Transmission Date: 20060501
  Serious: No
  Sender: FDA-Public Use
  Company Number: US-GLAXOSMITHKLINE-A0555239A

PATIENT
  Age: 59 Year
  Sex: Male
  Weight: 81.8 kg

DRUGS (9)
  1. ADVAIR DISKUS 100/50 [Suspect]
     Indication: BRONCHITIS
     Dosage: 1PUFF TWICE PER DAY
     Route: 055
     Dates: start: 20050402
  2. BIAXIN XL [Concomitant]
     Indication: INFECTION
     Route: 048
     Dates: start: 20050402
  3. PREDNISONE [Concomitant]
     Indication: INFLAMMATION
     Dosage: 20MG VARIABLE DOSE
     Route: 048
     Dates: start: 20050402
  4. PANNAZ [Concomitant]
     Route: 048
     Dates: start: 20050402
  5. DILTIAZEM [Concomitant]
     Route: 048
     Dates: start: 20050405
  6. DIOVAN HCT [Concomitant]
     Route: 048
     Dates: start: 20050421
  7. ZETIA [Concomitant]
     Route: 048
     Dates: start: 20050325
  8. AMITRIPTYLINE HCL [Concomitant]
     Indication: SLEEP DISORDER
     Dosage: 50MG AT NIGHT
     Route: 048
     Dates: start: 20050314
  9. TRAMADOL [Concomitant]
     Indication: PAIN
     Dosage: 50MG THREE TIMES PER DAY
     Route: 048
     Dates: start: 20050411

REACTIONS (2)
  - HYPOAESTHESIA ORAL [None]
  - STOMATITIS [None]
